FAERS Safety Report 7129149-X (Version None)
Quarter: 2010Q4

REPORT INFORMATION
  Report Type: 
  Country: None (occurrence: None)
  Receive Date: 20101130
  Receipt Date: 20101126
  Transmission Date: 20110411
  Serious: Yes (Life-Threatening, Hospitalization)
  Sender: FDA-Public Use
  Company Number: FR-ROCHE-727852

PATIENT
  Sex: Female
  Weight: 60 kg

DRUGS (6)
  1. BEVACIZUMAB [Suspect]
     Dosage: DOSE LEVEL:15 MG/KG. DATE OF LAST DOSE PRIOR TO SAE:10 SEPTEMBER 2010. DOSE FORM:VIALS
     Route: 042
     Dates: start: 20100618
  2. TRASTUZUMAB [Suspect]
     Dosage: DOSE LEVEL:6 MG/KG. DATE OF LAST DOSE PRIOR TO SAE:10 SEPTEMBER 2010. DOSE FORM:VIALS
     Route: 042
     Dates: start: 20100618
  3. DOCETAXEL [Suspect]
     Dosage: DOSE LEVEL:75 MG/M2.DATE OF LAST DOSE PRIOR TO SAE:10 SEPTEMBER 2010.DOSE FORM:VIALS.
     Route: 042
     Dates: start: 20100618
  4. DOCETAXEL [Suspect]
     Dosage: DOSE REDUCED BY ONE DOSE LEVEL. DOSE LEVEL:60 MG/M2
     Route: 042
  5. CARBOPLATIN [Suspect]
     Dosage: DOSE LEVEL:6 AUC. DATE OF LAST DOSE PRIOR TO SAE:10 SEPTEMBER 2010. DOSE FORM:VIALS.
     Route: 042
     Dates: start: 20100618
  6. CARBOPLATIN [Suspect]
     Dosage: DOSE REDUCED BY ONE DOSE LEVEL. DOSE LEVEL:5 AUC
     Route: 042

REACTIONS (11)
  - BLOOD CREATININE INCREASED [None]
  - COLITIS [None]
  - FEBRILE NEUTROPENIA [None]
  - HEPATOBILIARY DISEASE [None]
  - LIPASE INCREASED [None]
  - PYREXIA [None]
  - RENAL FAILURE [None]
  - SEPTIC SHOCK [None]
  - TORSADE DE POINTES [None]
  - VENTRICULAR ARRHYTHMIA [None]
  - VENTRICULAR DYSFUNCTION [None]
